FAERS Safety Report 6499888-2 (Version None)
Quarter: 2009Q4

REPORT INFORMATION
  Report Type: 
  Country: None (occurrence: None)
  Receive Date: 20091214
  Receipt Date: 20091214
  Transmission Date: 20100525
  Serious: No
  Sender: FDA-Public Use
  Company Number: None

PATIENT
  Age: 62 Year
  Sex: Male
  Weight: 97.5234 kg

DRUGS (2)
  1. COLD REMEDY NASAL GEL [Suspect]
     Indication: NASOPHARYNGITIS
     Dosage: SPORADIC 3 OR 4 DAYS
     Dates: start: 20081226
  2. ASPIRIN [Concomitant]

REACTIONS (2)
  - AGEUSIA [None]
  - ANOSMIA [None]
